FAERS Safety Report 21911610 (Version 1)
Quarter: 2023Q1

REPORT INFORMATION
  Report Type: Spontaneous
  Country: US (occurrence: US)
  Receive Date: 20230125
  Receipt Date: 20230125
  Transmission Date: 20230417
  Serious: No
  Sender: FDA-Public Use
  Company Number: US-ALLERGAN-2213655US

PATIENT
  Age: 76 Year
  Sex: Female

DRUGS (35)
  1. BOTOX COSMETIC [Suspect]
     Active Substance: ONABOTULINUMTOXINA
     Indication: Skin wrinkling
     Dosage: 12 UNITS, SINGLE
     Dates: start: 20220413, end: 20220413
  2. BOTOX COSMETIC [Suspect]
     Active Substance: ONABOTULINUMTOXINA
     Indication: Skin wrinkling
     Dosage: 12 UNITS, SINGLE
     Dates: start: 20220413, end: 20220413
  3. BOTOX COSMETIC [Suspect]
     Active Substance: ONABOTULINUMTOXINA
     Indication: Skin wrinkling
     Dosage: 20 UNITS, SINGLE
     Dates: start: 20220413, end: 20220413
  4. BOTOX COSMETIC [Suspect]
     Active Substance: ONABOTULINUMTOXINA
     Dosage: 3 UNITS, SINGLE
     Dates: start: 20220413, end: 20220413
  5. UNSPECIFIED INGREDIENT [Suspect]
     Active Substance: UNSPECIFIED INGREDIENT
  6. HYALURONIC ACID [Suspect]
     Active Substance: HYALURONIC ACID
  7. BELSOMRA [Concomitant]
     Active Substance: SUVOREXANT
  8. DOXEPIN [Concomitant]
     Active Substance: DOXEPIN
  9. VITAMIN B12 [Concomitant]
     Active Substance: CYANOCOBALAMIN
  10. VITAMIN C [Concomitant]
     Active Substance: ASCORBIC ACID
  11. VITAMIN D3 [Concomitant]
     Active Substance: CHOLECALCIFEROL
  12. Super adrenal stress formula [Concomitant]
     Dosage: 1 DF, QAM
  13. MELATONIN [Concomitant]
     Active Substance: MELATONIN
     Dosage: UNK, PRN
  14. Hair and Nail Supplement [Concomitant]
  15. MOMETASONE FUROATE [Concomitant]
     Active Substance: MOMETASONE FUROATE
  16. ALBUTEROL [Concomitant]
     Active Substance: ALBUTEROL
  17. AMITRIPTYLINE [Concomitant]
     Active Substance: AMITRIPTYLINE
  18. ADVAIR HFA [Concomitant]
     Active Substance: FLUTICASONE PROPIONATE\SALMETEROL XINAFOATE
  19. FAMOTIDINE [Concomitant]
     Active Substance: FAMOTIDINE
  20. GRALISE [Concomitant]
     Active Substance: GABAPENTIN
  21. LEVOTHYROXINE [Concomitant]
     Active Substance: LEVOTHYROXINE
  22. METOPROLOL [Concomitant]
     Active Substance: METOPROLOL
  23. OMEPRAZOLE [Concomitant]
     Active Substance: OMEPRAZOLE
  24. RALOXIFENE [Concomitant]
     Active Substance: RALOXIFENE
  25. ZETIA [Concomitant]
     Active Substance: EZETIMIBE
  26. Adrenal C Formula [Concomitant]
  27. ALEVE [Concomitant]
     Active Substance: NAPROXEN SODIUM
  28. BAYER ASPIRIN [Concomitant]
     Active Substance: ASPIRIN
  29. BENADRYL [Concomitant]
     Active Substance: DIPHENHYDRAMINE HYDROCHLORIDE
  30. Black cumin seed oil [Concomitant]
  31. CALCIUM [Concomitant]
     Active Substance: CALCIUM
  32. Elderberry gummies [Concomitant]
  33. FISH OIL [Concomitant]
     Active Substance: FISH OIL
  34. FLAXSEED OIL [LINUM USITATISSIMUM OIL] [Concomitant]
  35. GLUCOSAMINE CHONDROITIN [CHONDROITIN SULFATE;GLUCOSAMINE] [Concomitant]

REACTIONS (4)
  - Swelling [Recovering/Resolving]
  - Erythema [Recovering/Resolving]
  - Tenderness [Recovered/Resolved]
  - Pruritus [Recovered/Resolved]

NARRATIVE: CASE EVENT DATE: 20220415
